FAERS Safety Report 5079561-8 (Version None)
Quarter: 2006Q3

REPORT INFORMATION
  Report Type: 
  Country: None (occurrence: None)
  Receive Date: 20060811
  Receipt Date: 20060811
  Transmission Date: 20061208
  Serious: Yes (Hospitalization)
  Sender: FDA-Public Use
  Company Number: None

PATIENT
  Age: 57 Year
  Sex: Male
  Weight: 90 kg

DRUGS (6)
  1. LOVENOX [Suspect]
     Indication: DEEP VEIN THROMBOSIS
     Dosage: 90MG  Q12H  SQ
     Dates: start: 20040907, end: 20040915
  2. LOVENOX [Suspect]
     Indication: PULMONARY EMBOLISM
     Dosage: 90MG  Q12H  SQ
     Dates: start: 20040907, end: 20040915
  3. AMLODIPINE [Concomitant]
  4. LISINOPRIL [Concomitant]
  5. PANTOPRAZOLE SODIUM [Concomitant]
  6. HYDROMORPHONE HCL [Concomitant]

REACTIONS (2)
  - DEEP VEIN THROMBOSIS [None]
  - PULMONARY EMBOLISM [None]
